FAERS Safety Report 5942399-0 (Version None)
Quarter: 2008Q4

REPORT INFORMATION
  Report Type: 
  Country: None (occurrence: None)
  Receive Date: 20081105
  Receipt Date: 20081028
  Transmission Date: 20090506
  Serious: Yes (Hospitalization, Other)
  Sender: FDA-Public Use
  Company Number: US-PFIZER INC-2008091311

PATIENT
  Age: 71 Year
  Sex: Female
  Weight: 63.5 kg

DRUGS (3)
  1. NICOTINE [Suspect]
     Indication: SMOKING CESSATION THERAPY
  2. PHENERGAN ^SPECIA^ [Suspect]
     Indication: NAUSEA
  3. XANAX [Concomitant]

REACTIONS (10)
  - ANXIETY [None]
  - DRY MOUTH [None]
  - DYSPNOEA [None]
  - EMPHYSEMA [None]
  - EMPYEMA [None]
  - EPICONDYLITIS [None]
  - INCREASED TENDENCY TO BRUISE [None]
  - LUNG OPERATION [None]
  - NAUSEA [None]
  - SOMNOLENCE [None]
